FAERS Safety Report 16993507 (Version 1)
Quarter: 2019Q4

REPORT INFORMATION
  Report Type: Spontaneous
  Country: US (occurrence: US)
  Receive Date: 20190923
  Receipt Date: 20190923
  Transmission Date: 20200122
  Serious: No
  Sender: FDA-Public Use
  Company Number: None

PATIENT
  Age: 64 Year

DRUGS (1)
  1. IBRANCE [Suspect]
     Active Substance: PALBOCICLIB
     Indication: BREAST CANCER FEMALE
     Route: 048
     Dates: start: 201908, end: 20190923

REACTIONS (4)
  - Pain [None]
  - Dehydration [None]
  - Oedema peripheral [None]
  - Drug ineffective [None]

NARRATIVE: CASE EVENT DATE: 20190923
